FAERS Safety Report 8384688-9 (Version None)
Quarter: 2012Q2

REPORT INFORMATION
  Report Type: 
  Country: None (occurrence: None)
  Receive Date: 20120524
  Receipt Date: 20120515
  Transmission Date: 20120825
  Serious: Yes (Death, Hospitalization)
  Sender: FDA-Public Use
  Company Number: PH-BAXTER-2012BAX004220

PATIENT
  Sex: Female

DRUGS (7)
  1. VASTAREL [Concomitant]
  2. FERROUS SULFATE TAB [Concomitant]
  3. CLOPIDOGREL [Concomitant]
  4. DIANEAL PD-2 W/ DEXTROSE 1.5% [Suspect]
     Route: 033
     Dates: start: 20111028
  5. TAMSULOSIN HCL [Concomitant]
  6. NEUROBION [Concomitant]
  7. IMDUR [Concomitant]

REACTIONS (5)
  - MYOCARDIAL INFARCTION [None]
  - CONVULSION [None]
  - PERITONITIS [None]
  - ABDOMINAL PAIN UPPER [None]
  - CARDIAC ARREST [None]
